FAERS Safety Report 8325044-9 (Version None)
Quarter: 2012Q2

REPORT INFORMATION
  Report Type: 
  Country: None (occurrence: None)
  Receive Date: 20120501
  Receipt Date: 20120417
  Transmission Date: 20120825
  Serious: Yes (Death, Hospitalization)
  Sender: FDA-Public Use
  Company Number: FR-MYLANLABS-2012S1008293

PATIENT
  Age: 62 Year
  Sex: Female

DRUGS (11)
  1. SPIRONOLACTONE [Suspect]
     Dosage: 50/20MG
     Route: 065
  2. FORMOTEROL W/BUDESONIDE [Concomitant]
     Route: 065
  3. CETIRIZINE [Concomitant]
     Dosage: 10MG
     Route: 065
  4. RABEPRAZOLE SODIUM [Concomitant]
     Dosage: 20MG
     Route: 065
  5. DILTIAZEM [Suspect]
     Dosage: 200MG
     Route: 065
  6. ALBUTEROL [Concomitant]
     Route: 065
  7. METFORMIN HCL [Concomitant]
     Dosage: 1700MG
     Route: 065
  8. FLUOXETINE [Concomitant]
     Dosage: 20MG
     Route: 065
  9. PROCORALAN [Suspect]
     Indication: CARDIAC FAILURE
     Route: 065
     Dates: start: 20100909
  10. LORMETAZEPAM [Concomitant]
     Dosage: 8MG
     Route: 065
  11. CLONAZEPAM [Concomitant]
     Dosage: 0.5MG
     Route: 065

REACTIONS (10)
  - TORSADE DE POINTES [None]
  - HYPOKALAEMIA [None]
  - CARDIAC ARREST [None]
  - ELECTROCARDIOGRAM U-WAVE ABNORMALITY [None]
  - BLOOD CREATININE INCREASED [None]
  - ATRIAL FIBRILLATION [None]
  - BRAIN DEATH [None]
  - VENTRICULAR TACHYCARDIA [None]
  - ELECTROCARDIOGRAM QT PROLONGED [None]
  - ACIDOSIS [None]
